FAERS Safety Report 6671851-8 (Version None)
Quarter: 2010Q2

REPORT INFORMATION
  Report Type: 
  Country: None (occurrence: None)
  Receive Date: 20100407
  Receipt Date: 20100405
  Transmission Date: 20101027
  Serious: Yes (Other)
  Sender: FDA-Public Use
  Company Number: AU-ROXANE LABORATORIES, INC.-2010-RO-00375RO

PATIENT
  Age: 54 Year
  Sex: Male

DRUGS (7)
  1. LEUCOVORIN CALCIUM [Suspect]
     Indication: COLORECTAL CANCER METASTATIC
  2. DEXAMETHASONE [Suspect]
     Indication: PROPHYLAXIS OF NAUSEA AND VOMITING
     Dosage: 8 MG
     Route: 048
  3. ONDANSETRON [Suspect]
     Indication: PROPHYLAXIS OF NAUSEA AND VOMITING
     Dosage: 16 MG
     Route: 048
  4. OXALIPLATIN [Suspect]
     Indication: COLORECTAL CANCER METASTATIC
  5. FLUOROURACIL [Suspect]
     Indication: COLORECTAL CANCER METASTATIC
  6. FLUOROURACIL [Suspect]
  7. VENLAFAXINE [Suspect]
     Indication: DEPRESSION

REACTIONS (1)
  - HICCUPS [None]
